FAERS Safety Report 22611967 (Version 1)
Quarter: 2023Q2

REPORT INFORMATION
  Report Type: Spontaneous
  Country: DE (occurrence: DE)
  Receive Date: 20230617
  Receipt Date: 20230617
  Transmission Date: 20230722
  Serious: Yes (Other)
  Sender: FDA-Public Use
  Company Number: DE-Shilpa Medicare Limited-SML-DE-2023-00710

PATIENT

DRUGS (1)
  1. BORTEZOMIB [Suspect]
     Active Substance: BORTEZOMIB
     Indication: Acquired Von Willebrand^s disease
     Dosage: 4-DAY INTERVALS
     Route: 065

REACTIONS (1)
  - Off label use [Unknown]
